FAERS Safety Report 22957873 (Version 7)
Quarter: 2025Q1

REPORT INFORMATION
  Report Type: Spontaneous
  Country: US (occurrence: US)
  Receive Date: 20230919
  Receipt Date: 20250121
  Transmission Date: 20250408
  Serious: Yes (Other)
  Sender: PFIZER
  Company Number: US-PFIZER INC-PV202300156612

PATIENT
  Age: 54 Year
  Sex: Female

DRUGS (3)
  1. XELJANZ XR [Suspect]
     Active Substance: TOFACITINIB CITRATE
  2. QUETIAPINE [Concomitant]
     Active Substance: QUETIAPINE
     Indication: Rheumatic disorder
  3. TAMOXIFEN [Concomitant]
     Active Substance: TAMOXIFEN
     Indication: Neoplasm malignant

REACTIONS (4)
  - Pneumonia [Unknown]
  - Headache [Recovered/Resolved]
  - Pain [Not Recovered/Not Resolved]
  - Swelling [Not Recovered/Not Resolved]

NARRATIVE: CASE EVENT DATE: 20240401
